FAERS Safety Report 7113025-2 (Version None)
Quarter: 2010Q4

REPORT INFORMATION
  Report Type: 
  Country: None (occurrence: None)
  Receive Date: 20101119
  Receipt Date: 20101110
  Transmission Date: 20110411
  Serious: Yes (Death, Hospitalization, Other)
  Sender: FDA-Public Use
  Company Number: IT-BAYER-201042961GPV

PATIENT
  Age: 75 Year
  Sex: Male

DRUGS (30)
  1. NEXAVAR [Suspect]
     Indication: HEPATIC NEOPLASM MALIGNANT
     Route: 048
     Dates: start: 20100920, end: 20101007
  2. NEXAVAR [Suspect]
     Route: 048
     Dates: start: 20100916, end: 20100920
  3. NEXAVAR [Suspect]
     Route: 048
     Dates: start: 20100903, end: 20100916
  4. TICLID [Concomitant]
     Indication: ANGIOPATHY
     Dates: start: 20090101
  5. FUROSEMIDE [Concomitant]
     Indication: LIVER DISORDER
     Dates: start: 20050101
  6. HUMALOG [Concomitant]
     Indication: DIABETES MELLITUS
     Dates: start: 20100902
  7. INDERAL [Concomitant]
     Indication: PORTAL HYPERTENSION
     Dates: start: 20100903
  8. MEGACE [Concomitant]
     Indication: CACHEXIA
     Dates: start: 20100903
  9. RANITIDINE [Concomitant]
     Dosage: IN 250 ML OF PHYSIOLOGICAL SOLUTION
     Route: 042
     Dates: start: 20101005
  10. SANDOSTATIN [Concomitant]
     Dosage: 6 VIALS OF 0.1 MG IN 500 ML OF PHYSIOLOGICAL SOLUTION BY CONTINUOUS INFUSION IN 24 HOURS
     Dates: start: 20101005
  11. RED BLOOD CELLS [Concomitant]
     Dates: start: 20101007
  12. RED BLOOD CELLS [Concomitant]
     Dates: start: 20101005
  13. BLOOD AND PLASMA [Concomitant]
  14. NOREPINEPHRINE [Concomitant]
  15. GLUCOSE [Concomitant]
     Indication: FLUID REPLACEMENT
     Dosage: 5 %
  16. SODIUM BICARBONATE [Concomitant]
     Indication: HYPERKALAEMIA
     Dosage: 1.4 %
  17. SODIUM BICARBONATE [Concomitant]
     Dosage: 8.4%
     Dates: start: 20101007, end: 20101007
  18. GELFUSINE [Concomitant]
     Dosage: 150 CC
  19. PPI [Concomitant]
     Dosage: TOTAL DAILY DOSE: 80 MG
     Route: 042
  20. AMPICILLIN [Concomitant]
  21. SULBACTAM [Concomitant]
  22. METRONIDAZOLE [Concomitant]
  23. MORPHINE [Concomitant]
     Dates: start: 20101006
  24. ANTIHISTAMINE [Concomitant]
     Dates: start: 20101006
  25. PROPOFOL [Concomitant]
     Route: 040
     Dates: start: 20101006
  26. VENTOLIN [Concomitant]
     Indication: HYPERKALAEMIA
     Dosage: 2 VIALS
     Dates: start: 20101007, end: 20101007
  27. VENTOLIN [Concomitant]
     Dates: start: 20101006
  28. KAYEXALATE [Concomitant]
     Route: 054
     Dates: start: 20101006
  29. ETHACRYNIC ACID [Concomitant]
     Dosage: 1 VIAL
     Dates: start: 20101006
  30. FRESH FROZEN PLASMA [Concomitant]
     Dates: start: 20101007, end: 20101007

REACTIONS (8)
  - DEPRESSION [None]
  - DIARRHOEA [None]
  - GASTROINTESTINAL HAEMORRHAGE [None]
  - HEPATIC FAILURE [None]
  - HEPATIC FUNCTION ABNORMAL [None]
  - INSOMNIA [None]
  - JAUNDICE [None]
  - PSYCHOMOTOR HYPERACTIVITY [None]
